FAERS Safety Report 6599211-9 (Version None)
Quarter: 2010Q1

REPORT INFORMATION
  Report Type: 
  Country: None (occurrence: None)
  Receive Date: 20100224
  Receipt Date: 20100212
  Transmission Date: 20100710
  Serious: Yes (Hospitalization)
  Sender: FDA-Public Use
  Company Number: PHHY2010JP08315

PATIENT
  Age: 50 Year
  Sex: Male

DRUGS (2)
  1. NATEGLINIDE [Suspect]
     Indication: DIABETES MELLITUS
  2. INSULIN [Concomitant]

REACTIONS (8)
  - ALTERED STATE OF CONSCIOUSNESS [None]
  - DEHYDRATION [None]
  - FATIGUE [None]
  - HYPOGLYCAEMIA [None]
  - HYPOGLYCAEMIC COMA [None]
  - HYPOPHAGIA [None]
  - MALAISE [None]
  - RENAL IMPAIRMENT [None]
